FAERS Safety Report 11798559 (Version 1)
Quarter: 2015Q4

REPORT INFORMATION
  Report Type: Other
  Country: US (occurrence: US)
  Receive Date: 20151203
  Receipt Date: 20151203
  Transmission Date: 20160305
  Serious: Yes (Disabling)
  Sender: FDA-Public Use
  Company Number: US-COL_21386_2015

PATIENT
  Age: 37 Year
  Sex: Male

DRUGS (3)
  1. COLGATE TOTAL LASTING WHITE POLAR FRESHMINT [Suspect]
     Active Substance: SODIUM FLUORIDE
     Dosage: NO MORE THAN A TABLESPOON/ONCE/
     Route: 048
     Dates: start: 20151111, end: 20151111
  2. COLGATE TOTAL LASTING WHITE POLAR FRESHMINT [Suspect]
     Active Substance: SODIUM FLUORIDE
     Indication: PRODUCT USED FOR UNKNOWN INDICATION
     Dosage: NO MORE THAN A TABLESPOON/ONCE/
     Route: 048
     Dates: start: 201511, end: 201511
  3. COLGATE TOTAL LASTING WHITE POLAR FRESHMINT [Suspect]
     Active Substance: SODIUM FLUORIDE
     Dosage: NO MORE THAN A TABLESPOON/ONCE/
     Route: 048
     Dates: start: 201511, end: 201511

REACTIONS (10)
  - Activities of daily living impaired [Not Recovered/Not Resolved]
  - Stomatitis [Unknown]
  - Oral mucosal exfoliation [Unknown]
  - Cheilitis [Unknown]
  - Oral pain [Unknown]
  - Hypoaesthesia oral [Unknown]
  - Oral discomfort [Unknown]
  - Mouth swelling [Not Recovered/Not Resolved]
  - Mouth ulceration [Unknown]
  - Lymphadenopathy [Unknown]

NARRATIVE: CASE EVENT DATE: 201511
